FAERS Safety Report 9166293 (Version 1)
Quarter: 2013Q1

REPORT INFORMATION
  Report Type: Spontaneous
  Country: BR (occurrence: BR)
  Receive Date: 20130315
  Receipt Date: 20130315
  Transmission Date: 20140127
  Serious: Yes (Other)
  Sender: FDA-Public Use
  Company Number: BR-AMGEN-BRASP2013017972

PATIENT
  Age: 70 Year
  Sex: Female
  Weight: 71 kg

DRUGS (6)
  1. ENBREL [Suspect]
     Indication: RHEUMATOID ARTHRITIS
     Dosage: 25 MG,  WEEKLY
     Route: 058
     Dates: start: 200407
  2. VITAMINS /90003601/ [Concomitant]
     Indication: SUPPLEMENTATION THERAPY
     Dosage: UNKNOWN
     Dates: start: 2011
  3. STILNOX [Concomitant]
     Indication: INSOMNIA
     Dosage: UNK
     Dates: start: 2007
  4. PURAN T4 [Concomitant]
     Indication: THYROID NEOPLASM
     Dosage: UNK
     Dates: start: 2011
  5. GASTRIUM                           /00706001/ [Concomitant]
     Indication: DYSPEPSIA
     Dosage: UNK
     Dates: start: 2012
  6. LIPITOR [Concomitant]
     Indication: BLOOD CHOLESTEROL INCREASED
     Dosage: UNK
     Dates: start: 2007

REACTIONS (8)
  - Thyroid neoplasm [Unknown]
  - Cough [Unknown]
  - Chest discomfort [Unknown]
  - Dysphonia [Unknown]
  - Blood cholesterol increased [Unknown]
  - Hypertension [Unknown]
  - Dyspepsia [Unknown]
  - Influenza [Unknown]
